FAERS Safety Report 6136390-1 (Version None)
Quarter: 2009Q1

REPORT INFORMATION
  Report Type: 
  Country: None (occurrence: None)
  Receive Date: 20090330
  Receipt Date: 20090325
  Transmission Date: 20090719
  Serious: Yes (Life-Threatening)
  Sender: FDA-Public Use
  Company Number: JP-BAYER-200910559BYL

PATIENT
  Age: 66 Year
  Sex: Male
  Weight: 68 kg

DRUGS (1)
  1. NEXAVAR [Suspect]
     Indication: RENAL CELL CARCINOMA STAGE IV
     Dosage: TOTAL DAILY DOSE: 800 MG  UNIT DOSE: 200 MG
     Route: 048
     Dates: start: 20090202, end: 20090211

REACTIONS (1)
  - AORTIC DISSECTION [None]
